FAERS Safety Report 23952675 (Version 6)
Quarter: 2024Q4

REPORT INFORMATION
  Report Type: Spontaneous
  Country: US (occurrence: US)
  Receive Date: 20240607
  Receipt Date: 20241014
  Transmission Date: 20250115
  Serious: No
  Sender: PFIZER
  Company Number: US-PFIZER INC-202400185584

PATIENT
  Age: 12 Year
  Sex: Female
  Weight: 37.1 kg

DRUGS (1)
  1. GENOTROPIN [Suspect]
     Active Substance: SOMATROPIN
     Indication: Growth hormone deficiency
     Dosage: 1.2 MG, DAILY
     Route: 058
     Dates: start: 202405

REACTIONS (3)
  - Poor quality device used [Unknown]
  - Device leakage [Unknown]
  - Drug dose omission by device [Unknown]
